FAERS Safety Report 9102766 (Version 1)
Quarter: 2013Q1

REPORT INFORMATION
  Report Type: Spontaneous
  Country: RO (occurrence: RO)
  Receive Date: 20130219
  Receipt Date: 20130219
  Transmission Date: 20140127
  Serious: Yes (Other)
  Sender: FDA-Public Use
  Company Number: RO-JNJFOC-20130208460

PATIENT
  Age: 63 Year
  Sex: Female

DRUGS (2)
  1. RISPOLEPT CONSTA [Suspect]
     Indication: SCHIZOPHRENIA
     Route: 030
     Dates: start: 20120709, end: 20120710
  2. RISPERDAL [Suspect]
     Indication: SCHIZOPHRENIA
     Route: 048
     Dates: start: 20120626, end: 20120710

REACTIONS (3)
  - Musculoskeletal stiffness [Recovered/Resolved]
  - Dysphonia [Recovered/Resolved]
  - Somnolence [Recovered/Resolved]
